FAERS Safety Report 13850907 (Version 2)
Quarter: 2017Q3

REPORT INFORMATION
  Report Type: Other
  Country: US (occurrence: US)
  Receive Date: 20170809
  Receipt Date: 20170825
  Transmission Date: 20171127
  Serious: Yes (Other)
  Sender: FDA-Public Use
  Company Number: US-BD MEDICAL-2024391

PATIENT

DRUGS (1)
  1. BD E-Z SCRUB (CHLOROXYLENOL) [Suspect]
     Active Substance: CHLOROXYLENOL

REACTIONS (1)
  - Product contamination physical [Recovered/Resolved]
